FAERS Safety Report 15593721 (Version 5)
Quarter: 2019Q3

REPORT INFORMATION
  Report Type: Spontaneous
  Country: US (occurrence: US)
  Receive Date: 20181107
  Receipt Date: 20190912
  Transmission Date: 20191004
  Serious: Yes (Death, Hospitalization, Other)
  Sender: FDA-Public Use
  Company Number: US-PFIZER INC-2018453365

PATIENT
  Age: 81 Year
  Sex: Female
  Weight: 135 kg

DRUGS (1)
  1. IBRANCE [Suspect]
     Active Substance: PALBOCICLIB
     Indication: BREAST CANCER METASTATIC
     Dosage: 125 MG, CYCLIC (DAY 1 TO 21 WITH 7 DAYS OFF)
     Route: 048
     Dates: start: 20181016, end: 201909

REACTIONS (14)
  - Sinus congestion [Unknown]
  - Death [Fatal]
  - Abdominal pain upper [Unknown]
  - Productive cough [Unknown]
  - Nausea [Unknown]
  - Nasopharyngitis [Not Recovered/Not Resolved]
  - Pyrexia [Unknown]
  - Nasal discharge discolouration [Unknown]
  - Pulmonary embolism [Unknown]
  - Headache [Unknown]
  - Hypersomnia [Unknown]
  - Pain [Unknown]
  - Decreased appetite [Unknown]
  - Sputum discoloured [Unknown]

NARRATIVE: CASE EVENT DATE: 2018
